FAERS Safety Report 6075537-2 (Version None)
Quarter: 2009Q1

REPORT INFORMATION
  Report Type: 
  Country: None (occurrence: None)
  Receive Date: 20090210
  Receipt Date: 20090210
  Transmission Date: 20090719
  Serious: Yes (Other)
  Sender: FDA-Public Use
  Company Number: None

PATIENT
  Age: 51 Year
  Sex: Female
  Weight: 65.7716 kg

DRUGS (1)
  1. MUCINEX DM [Suspect]
     Dosage: 1 PILL ONLY ONCE PO ONE TIME ONLY
     Route: 048
     Dates: start: 20090206, end: 20090206

REACTIONS (4)
  - COUGH [None]
  - EPISTAXIS [None]
  - FEELING ABNORMAL [None]
  - VOMITING [None]
